FAERS Safety Report 8790927 (Version 1)
Quarter: 2012Q4

REPORT INFORMATION
  Report Type: Spontaneous
  Country: US (occurrence: None)
  Receive Date: 20120913
  Receipt Date: 20120913
  Transmission Date: 20130627
  Serious: No
  Sender: FDA-Public Use
  Company Number: None

PATIENT
  Age: 59 Year
  Sex: Female
  Weight: 68.04 kg

DRUGS (1)
  1. CYMBALTA [Suspect]
     Indication: CHRONIC PAIN
     Route: 048
     Dates: start: 20111205, end: 20111209

REACTIONS (2)
  - Feeling abnormal [None]
  - Insomnia [None]
